FAERS Safety Report 8199241-X (Version None)
Quarter: 2012Q1

REPORT INFORMATION
  Report Type: 
  Country: None (occurrence: None)
  Receive Date: 20120306
  Receipt Date: 20120221
  Transmission Date: 20120608
  Serious: Yes (Hospitalization)
  Sender: FDA-Public Use
  Company Number: BACL20120002

PATIENT
  Age: 75 Year
  Sex: Male

DRUGS (2)
  1. PERCOCET 5MG/325MG (PARACETAMOL, OXYCOONE HYDROCHLORIDE) (PARACETAMOL, [Concomitant]
  2. BACLOFEN [Suspect]
     Indication: ARTHRALGIA
     Dosage: 30 MG, 3 IN 1 D, ORAL
     Route: 048

REACTIONS (8)
  - MENTAL STATUS CHANGES [None]
  - LETHARGY [None]
  - TOXIC ENCEPHALOPATHY [None]
  - METABOLIC ENCEPHALOPATHY [None]
  - MENISCUS LESION [None]
  - HAEMODIALYSIS [None]
  - CONVULSION [None]
  - LIGAMENT RUPTURE [None]
